FAERS Safety Report 8339732-1 (Version None)
Quarter: 2012Q2

REPORT INFORMATION
  Report Type: 
  Country: None (occurrence: None)
  Receive Date: 20120507
  Receipt Date: 20120502
  Transmission Date: 20120825
  Serious: Yes (Hospitalization)
  Sender: FDA-Public Use
  Company Number: BR-SANOFI-AVENTIS-2012SA025480

PATIENT
  Age: 70 Year
  Sex: Female
  Weight: 105 kg

DRUGS (8)
  1. DIOVAN HCT [Concomitant]
     Dosage: STRENGTH: 160/25 MG
     Route: 048
     Dates: start: 20040101
  2. ALLOPURINOL [Concomitant]
     Dosage: STRENGTH:205 MG
     Route: 048
     Dates: start: 20111201, end: 20120319
  3. FAMOTIDINE [Concomitant]
     Indication: PROPHYLAXIS
     Dosage: STRENGTH:40 MG
     Route: 048
     Dates: start: 20111201, end: 20120319
  4. ARAVA [Suspect]
     Indication: RHEUMATOID ARTHRITIS
     Dosage: STRENGTH: 20 MG
     Route: 048
     Dates: start: 20120101
  5. ACETAMINOPHEN [Concomitant]
     Indication: PAIN
     Dosage: STRENGTH: 600 MG
     Route: 048
     Dates: start: 20111201, end: 20120319
  6. ARAVA [Suspect]
     Dosage: STRENGTH: 20 MG
     Route: 048
     Dates: start: 20120101
  7. ATENOLOL [Concomitant]
     Dosage: STRENGTH: 50 MG
     Route: 048
     Dates: start: 20040101
  8. ACETYLSALICYLIC ACID/ISOSORBIDE MONONITRATE [Concomitant]
     Dosage: STRENGTH: 100/40 MG
     Route: 048
     Dates: start: 20040101

REACTIONS (1)
  - ARRHYTHMIA [None]
